FAERS Safety Report 9929462 (Version 1)
Quarter: 2014Q1

REPORT INFORMATION
  Report Type: Spontaneous
  Country: GB (occurrence: GB)
  Receive Date: 20140227
  Receipt Date: 20140227
  Transmission Date: 20141002
  Serious: Yes (Hospitalization)
  Sender: FDA-Public Use
  Company Number: GB-B.I. PHARMACEUTICALS,INC./RIDGEFIELD-2014-BI-07782UK

PATIENT
  Sex: Male

DRUGS (6)
  1. PRAMIPEXOLE [Suspect]
     Indication: RESTLESS LEGS SYNDROME
     Route: 048
     Dates: start: 20140203, end: 20140204
  2. BRIMONIDINE [Concomitant]
     Route: 065
  3. BRINZOLAMIDE [Concomitant]
     Route: 065
  4. CARMELLOSE [Concomitant]
     Route: 065
  5. LATANOPROST [Concomitant]
     Route: 065
  6. TIMOLOL [Concomitant]
     Route: 065

REACTIONS (5)
  - Haemorrhage intracranial [Unknown]
  - Loss of consciousness [Unknown]
  - Confusional state [Unknown]
  - Syncope [Unknown]
  - Visual impairment [Unknown]
